FAERS Safety Report 24355072 (Version 2)
Quarter: 2025Q1

REPORT INFORMATION
  Report Type: Spontaneous
  Country: US (occurrence: US)
  Receive Date: 20240923
  Receipt Date: 20250218
  Transmission Date: 20250408
  Serious: Yes (Other)
  Sender: ELI LILLY AND COMPANY
  Company Number: US-ELI_LILLY_AND_COMPANY-US202409006898

PATIENT
  Age: 54 Year
  Sex: Female

DRUGS (2)
  1. VERZENIO [Suspect]
     Active Substance: ABEMACICLIB
     Indication: Breast cancer
     Route: 065
     Dates: start: 20240829
  2. VERZENIO [Suspect]
     Active Substance: ABEMACICLIB
     Route: 065
     Dates: start: 20240926

REACTIONS (2)
  - Malignant neoplasm progression [Unknown]
  - Diarrhoea [Unknown]
